FAERS Safety Report 16278921 (Version 2)
Quarter: 2019Q2

REPORT INFORMATION
  Report Type: Spontaneous
  Country: CZ (occurrence: CZ)
  Receive Date: 20190506
  Receipt Date: 20190606
  Transmission Date: 20190711
  Serious: Yes (Other)
  Sender: FDA-Public Use
  Company Number: CZ-009507513-1904CZE012098

PATIENT
  Sex: Female

DRUGS (3)
  1. SIMVASTATIN. [Suspect]
     Active Substance: SIMVASTATIN
     Indication: HYPERCHOLESTEROLAEMIA
     Dosage: 40 MG, UNK
     Route: 048
     Dates: start: 2013, end: 2016
  2. ATORVASTATIN [Suspect]
     Active Substance: ATORVASTATIN
     Indication: HYPERCHOLESTEROLAEMIA
     Dosage: 40 MG, QD
     Route: 048
     Dates: start: 2016, end: 2016
  3. EZETIMIBE. [Suspect]
     Active Substance: EZETIMIBE
     Indication: HYPERCHOLESTEROLAEMIA
     Dosage: UNK UNK, UNK
     Route: 048
     Dates: start: 2013, end: 2016

REACTIONS (5)
  - Drug intolerance [Unknown]
  - Depression [Recovered/Resolved]
  - Arthralgia [Recovered/Resolved]
  - Myalgia [Recovered/Resolved]
  - Insomnia [Recovered/Resolved]

NARRATIVE: CASE EVENT DATE: 2016
